FAERS Safety Report 23833167 (Version 1)
Quarter: 2024Q2

REPORT INFORMATION
  Report Type: Spontaneous
  Country: US (occurrence: US)
  Receive Date: 20240508
  Receipt Date: 20240508
  Transmission Date: 20240716
  Serious: No
  Sender: FDA-Public Use
  Company Number: US-MYLANLABS-2024M1034578

PATIENT
  Age: 57 Year
  Sex: Male
  Weight: 104.33 kg

DRUGS (1)
  1. WIXELA INHUB [Suspect]
     Active Substance: FLUTICASONE PROPIONATE\SALMETEROL XINAFOATE
     Indication: Asthma
     Dosage: 1000/100 MICROGRAM, QD (APPLIED TWO PUFF ONCE A DAY)
     Route: 055
     Dates: start: 20240302

REACTIONS (3)
  - Off label use [Unknown]
  - Device defective [Unknown]
  - Product delivery mechanism issue [Unknown]

NARRATIVE: CASE EVENT DATE: 20240302
